FAERS Safety Report 4824110-X (Version None)
Quarter: 2005Q4

REPORT INFORMATION
  Report Type: 
  Country: None (occurrence: None)
  Receive Date: 20051108
  Receipt Date: 20051024
  Transmission Date: 20060501
  Serious: Yes (Death, Other)
  Sender: FDA-Public Use
  Company Number: USA0507103797

PATIENT
  Sex: Female

DRUGS (1)
  1. EVISTA [Suspect]
     Dosage: UNK
     Route: 065

REACTIONS (4)
  - HIP ARTHROPLASTY [None]
  - LUNG NEOPLASM MALIGNANT [None]
  - PNEUMONIA [None]
  - SHOULDER ARTHROPLASTY [None]
